FAERS Safety Report 25478238 (Version 1)
Quarter: 2025Q2

REPORT INFORMATION
  Report Type: Spontaneous
  Country: US (occurrence: None)
  Receive Date: 20250625
  Receipt Date: 20250625
  Transmission Date: 20250717
  Serious: Yes (Hospitalization)
  Sender: FDA-CTU
  Company Number: None

PATIENT
  Age: 68 Year
  Sex: Male
  Weight: 89.6 kg

DRUGS (1)
  1. TEMOZOLOMIDE [Suspect]
     Active Substance: TEMOZOLOMIDE
     Indication: Plasma cell myeloma
     Dates: end: 20250524

REACTIONS (4)
  - Atrial tachycardia [None]
  - Palpitations [None]
  - Hypotension [None]
  - Atrial flutter [None]

NARRATIVE: CASE EVENT DATE: 20250617
